FAERS Safety Report 9769082 (Version 4)
Quarter: 2014Q3

REPORT INFORMATION
  Report Type: Report from Study
  Country: KR (occurrence: KR)
  Receive Date: 20131218
  Receipt Date: 20140723
  Transmission Date: 20150326
  Serious: Yes (Hospitalization)
  Sender: FDA-Public Use
  Company Number: KR-JNJFOC-20131206581

PATIENT
  Age: 44 Year
  Sex: Male
  Weight: 63.6 kg

DRUGS (11)
  1. SIMPONI [Suspect]
     Active Substance: GOLIMUMAB
     Indication: ANKYLOSING SPONDYLITIS
     Route: 058
     Dates: start: 20140206, end: 20140206
  2. SIMPONI [Suspect]
     Active Substance: GOLIMUMAB
     Indication: ANKYLOSING SPONDYLITIS
     Route: 058
     Dates: start: 20140505, end: 20140505
  3. CODEINE PHOSPHATE [Concomitant]
     Active Substance: CODEINE PHOSPHATE
     Indication: COUGH
     Route: 048
     Dates: start: 20130903, end: 20131021
  4. SYNATURA [Concomitant]
     Indication: COUGH
     Route: 048
     Dates: start: 20130903, end: 20131021
  5. STILNOX [Concomitant]
     Active Substance: ZOLPIDEM TARTRATE
     Indication: INSOMNIA
     Route: 048
     Dates: start: 20130709, end: 20131115
  6. SIMPONI [Suspect]
     Active Substance: GOLIMUMAB
     Indication: ANKYLOSING SPONDYLITIS
     Route: 058
     Dates: start: 20140407, end: 20140407
  7. CELEBREX [Concomitant]
     Active Substance: CELECOXIB
     Indication: ANKYLOSING SPONDYLITIS
     Route: 048
     Dates: start: 20120904
  8. SIMPONI [Suspect]
     Active Substance: GOLIMUMAB
     Indication: ANKYLOSING SPONDYLITIS
     Route: 058
     Dates: start: 20131115, end: 20131115
  9. SIMPONI [Suspect]
     Active Substance: GOLIMUMAB
     Indication: ANKYLOSING SPONDYLITIS
     Route: 058
     Dates: start: 20131224, end: 20131224
  10. FERROUS AMINOPROPANE DICARBOXYLATE [Concomitant]
     Indication: ANAEMIA
     Route: 048
     Dates: start: 20131105
  11. SIMPONI [Suspect]
     Active Substance: GOLIMUMAB
     Indication: ANKYLOSING SPONDYLITIS
     Route: 058
     Dates: start: 20131017, end: 20131017

REACTIONS (3)
  - Haemorrhoids [Recovered/Resolved]
  - Haemoglobin decreased [Unknown]
  - Chronic gastritis [Unknown]

NARRATIVE: CASE EVENT DATE: 2013
